FAERS Safety Report 19966589 (Version 1)
Quarter: 2021Q4

REPORT INFORMATION
  Report Type: Spontaneous
  Country: US (occurrence: US)
  Receive Date: 20211018
  Receipt Date: 20211018
  Transmission Date: 20220303
  Serious: No
  Sender: FDA-Public Use
  Company Number: US-SANOFI-00811436

PATIENT
  Sex: Female

DRUGS (1)
  1. ZANTAC 150 MAXIMUM STRENGTH [Suspect]
     Active Substance: RANITIDINE HYDROCHLORIDE

REACTIONS (1)
  - Gastric disorder [Unknown]
